FAERS Safety Report 12472135 (Version 1)
Quarter: 2016Q2

REPORT INFORMATION
  Report Type: Spontaneous
  Country: US (occurrence: US)
  Receive Date: 20160616
  Receipt Date: 20160616
  Transmission Date: 20160815
  Serious: Yes (Congenital Anomaly)
  Sender: FDA-Public Use
  Company Number: US-JNJFOC-20160606540

PATIENT

DRUGS (1)
  1. TOPAMAX [Suspect]
     Active Substance: TOPIRAMATE
     Indication: PRODUCT USED FOR UNKNOWN INDICATION
     Route: 064

REACTIONS (2)
  - Foetal disorder [Unknown]
  - Foetal exposure during pregnancy [Unknown]
